FAERS Safety Report 23183656 (Version 1)
Quarter: 2023Q4

REPORT INFORMATION
  Report Type: Other
  Country: None (occurrence: US)
  Receive Date: 20231114
  Receipt Date: 20231114
  Transmission Date: 20240110
  Serious: Yes (Life-Threatening, Hospitalization)
  Sender: FDA-Public Use
  Company Number: US-B.Braun Medical Inc.-2148216

PATIENT
  Age: 31 Year
  Sex: Male

DRUGS (4)
  1. LACTATED RINGERS SOLUTION [Suspect]
     Active Substance: CALCIUM CHLORIDE\POTASSIUM CHLORIDE\SODIUM CHLORIDE\SODIUM LACTATE
     Indication: Acute kidney injury
  2. SODIUM CHLORIDE [Suspect]
     Active Substance: SODIUM CHLORIDE
  3. SODIUM BICARBONATE [Suspect]
     Active Substance: SODIUM BICARBONATE
  4. SODIUM CHLORIDE [Suspect]
     Active Substance: SODIUM CHLORIDE

REACTIONS (5)
  - Hypervolaemia [None]
  - Oedema peripheral [None]
  - Hypertension [None]
  - Posterior reversible encephalopathy syndrome [None]
  - Drug ineffective [None]
